FAERS Safety Report 10103132 (Version 1)
Quarter: 2014Q2

REPORT INFORMATION
  Report Type: Spontaneous
  Country: US (occurrence: US)
  Receive Date: 20140424
  Receipt Date: 20140424
  Transmission Date: 20141212
  Serious: No
  Sender: FDA-Public Use
  Company Number: US-BRISTOL-MYERS SQUIBB COMPANY-20114864

PATIENT
  Age: 61 Year
  Sex: Female
  Weight: 81.63 kg

DRUGS (3)
  1. ELIQUIS [Suspect]
     Dosage: NOW TAKING AS TWICE DAILY
  2. PANTOPRAZOLE [Concomitant]
  3. FLECAINIDE [Concomitant]

REACTIONS (1)
  - Underdose [Unknown]
